FAERS Safety Report 5991314-2 (Version None)
Quarter: 2008Q4

REPORT INFORMATION
  Report Type: 
  Country: None (occurrence: None)
  Receive Date: 20081211
  Receipt Date: 20081204
  Transmission Date: 20090506
  Serious: Yes (Other)
  Sender: FDA-Public Use
  Company Number: JP-ASTRAZENECA-2008AP09443

PATIENT
  Age: 60 Year
  Sex: Female

DRUGS (2)
  1. IRESSA [Suspect]
     Indication: LUNG NEOPLASM MALIGNANT
     Route: 048
  2. HALCION [Concomitant]
     Dosage: DOSE UNKNOWN
     Route: 048

REACTIONS (1)
  - SUICIDE ATTEMPT [None]
